FAERS Safety Report 11258117 (Version 2)
Quarter: 2015Q3

REPORT INFORMATION
  Report Type: Spontaneous
  Country: MT (occurrence: MT)
  Receive Date: 20150710
  Receipt Date: 20150723
  Transmission Date: 20151125
  Serious: Yes (Other)
  Sender: FDA-Public Use
  Company Number: MT-AMGEN-MLTSP2015067936

PATIENT
  Age: 5 Decade
  Sex: Male

DRUGS (1)
  1. ENBREL [Suspect]
     Active Substance: ETANERCEPT
     Indication: RHEUMATOID ARTHRITIS
     Dosage: 50 MG, WEEKLY
     Route: 065
     Dates: start: 2015

REACTIONS (2)
  - Anaphylactic shock [Recovered/Resolved]
  - Injection site reaction [Recovered/Resolved]
